FAERS Safety Report 9031548 (Version 2)
Quarter: 2015Q3

REPORT INFORMATION
  Report Type: Report from Study
  Country: US (occurrence: US)
  Receive Date: 20130124
  Receipt Date: 20150804
  Transmission Date: 20151125
  Serious: Yes (Other)
  Sender: FDA-Public Use
  Company Number: US-ROCHE-1182103

PATIENT

DRUGS (3)
  1. BENDAMUSTINE [Suspect]
     Active Substance: BENDAMUSTINE
     Dosage: DAY2
     Route: 042
  2. RITUXIMAB [Suspect]
     Active Substance: RITUXIMAB
     Indication: MANTLE CELL LYMPHOMA
     Dosage: DAY 1
     Route: 042
  3. BENDAMUSTINE [Suspect]
     Active Substance: BENDAMUSTINE
     Indication: MANTLE CELL LYMPHOMA
     Dosage: DAY1
     Route: 042

REACTIONS (14)
  - Neutropenia [Unknown]
  - Hypotension [Unknown]
  - Infestation [Unknown]
  - Anaemia [Unknown]
  - Infusion related reaction [Unknown]
  - Pneumonia [Unknown]
  - Thrombocytopenia [Unknown]
  - Confusional state [Unknown]
  - Lymphopenia [Unknown]
  - Infection [Unknown]
  - Leukopenia [Unknown]
  - Back pain [Unknown]
  - Pleural effusion [Unknown]
  - Hypokalaemia [Unknown]
